FAERS Safety Report 5630041-8 (Version None)
Quarter: 2008Q1

REPORT INFORMATION
  Report Type: 
  Country: None (occurrence: None)
  Receive Date: 20080218
  Receipt Date: 20080208
  Transmission Date: 20080703
  Serious: Yes (Other)
  Sender: FDA-Public Use
  Company Number: US-GILEAD-2008-0014935

PATIENT
  Sex: Female
  Weight: 72.64 kg

DRUGS (8)
  1. LETAIRIS [Suspect]
     Indication: PULMONARY HYPERTENSION
     Route: 048
     Dates: start: 20071106, end: 20071205
  2. LETAIRIS [Suspect]
     Route: 048
     Dates: start: 20071206, end: 20080108
  3. LETAIRIS [Suspect]
     Route: 048
     Dates: start: 20080109, end: 20080207
  4. REMODULIN [Concomitant]
     Indication: PULMONARY HYPERTENSION
     Route: 058
  5. REVATIO [Concomitant]
     Indication: PULMONARY HYPERTENSION
     Route: 048
  6. DIOVAN [Concomitant]
     Indication: ESSENTIAL HYPERTENSION
     Route: 048
  7. LASIX [Concomitant]
     Indication: PULMONARY HYPERTENSION
     Route: 048
  8. LASIX [Concomitant]
     Route: 048
     Dates: start: 20080101

REACTIONS (5)
  - DYSPNOEA [None]
  - GENERALISED OEDEMA [None]
  - HEADACHE [None]
  - NASAL CONGESTION [None]
  - OEDEMA PERIPHERAL [None]
